FAERS Safety Report 16116379 (Version 2)
Quarter: 2019Q2

REPORT INFORMATION
  Report Type: Spontaneous
  Country: FR (occurrence: FR)
  Receive Date: 20190326
  Receipt Date: 20190403
  Transmission Date: 20190711
  Serious: Yes (Hospitalization, Other)
  Sender: FDA-Public Use
  Company Number: FR-AUROBINDO-AUR-APL-2016-00184

PATIENT

DRUGS (4)
  1. PREDNISONE. [Suspect]
     Active Substance: PREDNISONE
     Indication: POLYARTHRITIS
     Dosage: 60 MILLIGRAM, DAILY
     Route: 065
  2. PREDNISONE. [Suspect]
     Active Substance: PREDNISONE
     Dosage: 30 MILLIGRAM, DAILY
     Route: 065
  3. PREDNISONE. [Suspect]
     Active Substance: PREDNISONE
     Indication: DERMATOMYOSITIS
     Dosage: 10 MILLIGRAM, DAILY
     Route: 065
  4. METHYLPREDNISOLONE. [Suspect]
     Active Substance: METHYLPREDNISOLONE
     Indication: DERMATOMYOSITIS
     Dosage: 500 MILLIGRAM, DAILY, BOLUS
     Route: 040

REACTIONS (10)
  - Oedema [Not Recovered/Not Resolved]
  - Muscular weakness [Not Recovered/Not Resolved]
  - Depression [Unknown]
  - Choking [Unknown]
  - Dermatomyositis [Not Recovered/Not Resolved]
  - Oedema peripheral [Recovering/Resolving]
  - Dysphagia [Recovering/Resolving]
  - Face oedema [Not Recovered/Not Resolved]
  - Condition aggravated [Recovering/Resolving]
  - Drug ineffective [Unknown]
